FAERS Safety Report 26111544 (Version 2)
Quarter: 2025Q4

REPORT INFORMATION
  Report Type: Report from Study
  Country: US (occurrence: US)
  Receive Date: 20251202
  Receipt Date: 20251224
  Transmission Date: 20260117
  Serious: Yes (Other)
  Sender: MALLINCKRODT
  Company Number: US-MALLINCKRODT-MNK202507591

PATIENT
  Sex: Female
  Weight: 105 kg

DRUGS (1)
  1. CORTICOTROPIN [Suspect]
     Active Substance: CORTICOTROPIN
     Indication: Keratitis
     Dosage: 80 UNITS

REACTIONS (3)
  - Corneal abrasion [Not Recovered/Not Resolved]
  - Increased appetite [Unknown]
  - Weight increased [Not Recovered/Not Resolved]
